FAERS Safety Report 4298858-2 (Version None)
Quarter: 2004Q1

REPORT INFORMATION
  Report Type: 
  Country: None (occurrence: None)
  Receive Date: 20040126
  Receipt Date: 20031107
  Transmission Date: 20041129
  Serious: No
  Sender: FDA-Public Use
  Company Number: USA031152001

PATIENT
  Sex: Male

DRUGS (1)
  1. STRATTERA [Suspect]
     Dosage: 40 MG/DAY
     Dates: start: 20031107

REACTIONS (4)
  - DIZZINESS [None]
  - FATIGUE [None]
  - PHOTOPSIA [None]
  - VISUAL FIELD DEFECT [None]
